FAERS Safety Report 10208496 (Version 1)
Quarter: 2014Q2

REPORT INFORMATION
  Report Type: Spontaneous
  Country: FR (occurrence: FR)
  Receive Date: 20140530
  Receipt Date: 20140530
  Transmission Date: 20141212
  Serious: Yes (Other)
  Sender: FDA-Public Use
  Company Number: FR-BRISTOL-MYERS SQUIBB COMPANY-20845152

PATIENT
  Age: 40 Year
  Sex: Male

DRUGS (2)
  1. KOMBOGLYZE [Suspect]
     Indication: DIABETES MELLITUS
     Dates: start: 201312
  2. SEROPLEX [Concomitant]
     Dates: start: 201212

REACTIONS (2)
  - Abdominal pain [Not Recovered/Not Resolved]
  - Lipase increased [Not Recovered/Not Resolved]
